FAERS Safety Report 6398712-6 (Version None)
Quarter: 2009Q4

REPORT INFORMATION
  Report Type: 
  Country: None (occurrence: None)
  Receive Date: 20091013
  Receipt Date: 20090929
  Transmission Date: 20100525
  Serious: Yes (Other)
  Sender: FDA-Public Use
  Company Number: PHHY2009DK42360

PATIENT
  Age: 22 Year
  Sex: Female

DRUGS (3)
  1. RITALIN TAB [Suspect]
     Indication: ATTENTION DEFICIT/HYPERACTIVITY DISORDER
     Dosage: 20 MG + 20 MG + 0 MG
  2. RITALIN TAB [Suspect]
     Dosage: UNK
  3. RITALIN [Suspect]
     Indication: ATTENTION DEFICIT/HYPERACTIVITY DISORDER
     Dosage: 0+0+10 MG

REACTIONS (1)
  - INTENTIONAL DRUG MISUSE [None]
